FAERS Safety Report 17540936 (Version 1)
Quarter: 2020Q1

REPORT INFORMATION
  Report Type: Report from Study
  Country: None (occurrence: GB)
  Receive Date: 20200314
  Receipt Date: 20200314
  Transmission Date: 20200409
  Serious: Yes (Hospitalization, Other)
  Sender: FDA-Public Use
  Company Number: GB-ABBVIE-20K-167-3274474-00

PATIENT
  Sex: Female

DRUGS (2)
  1. DUODOPA [Suspect]
     Active Substance: CARBIDOPA\LEVODOPA
     Dosage: DOSE DECREASED
     Route: 050
  2. DUODOPA [Suspect]
     Active Substance: CARBIDOPA\LEVODOPA
     Indication: PARKINSON^S DISEASE
     Dosage: 100ML CASSETTE DAILY 5MG/1ML 20MG/1ML
     Route: 050

REACTIONS (11)
  - Hospitalisation [Unknown]
  - Immobile [Not Recovered/Not Resolved]
  - Device use issue [Not Recovered/Not Resolved]
  - Seizure [Not Recovered/Not Resolved]
  - Somnolence [Not Recovered/Not Resolved]
  - Muscle spasms [Unknown]
  - Dyskinesia [Unknown]
  - Hallucination [Not Recovered/Not Resolved]
  - Heart rate irregular [Unknown]
  - Eye disorder [Unknown]
  - Malaise [Unknown]

NARRATIVE: CASE EVENT DATE: 2020
